FAERS Safety Report 8545336-8 (Version None)
Quarter: 2012Q3

REPORT INFORMATION
  Report Type: 
  Country: None (occurrence: None)
  Receive Date: 20120727
  Receipt Date: 20120720
  Transmission Date: 20120928
  Serious: Yes (Death, Hospitalization, Other)
  Sender: FDA-Public Use
  Company Number: JP-ASTELLAS-2012US004878

PATIENT
  Age: 51 Year
  Sex: Female

DRUGS (15)
  1. METHYLCOBAL [Concomitant]
     Indication: PRODUCT USED FOR UNKNOWN INDICATION
     Dosage: 1500 UG, UID/QD
     Route: 048
     Dates: start: 20120416, end: 20120514
  2. MAGNESIUM OXIDE [Concomitant]
     Indication: PRODUCT USED FOR UNKNOWN INDICATION
     Dosage: 2.01 G, UID/QD
     Route: 048
     Dates: start: 20120426, end: 20120514
  3. MYONAL                             /00287502/ [Concomitant]
     Indication: PRODUCT USED FOR UNKNOWN INDICATION
     Dosage: 150 MG, UID/QD
     Route: 048
     Dates: start: 20120413, end: 20120514
  4. STADERM [Concomitant]
     Indication: PRODUCT USED FOR UNKNOWN INDICATION
     Dosage: UNK
     Route: 003
     Dates: start: 20120513, end: 20120514
  5. INSULIN [Concomitant]
     Indication: DIABETES MELLITUS
     Dosage: UNK
     Route: 058
     Dates: start: 20120401
  6. PURSENIDE [Concomitant]
     Indication: PRODUCT USED FOR UNKNOWN INDICATION
     Dosage: 24 MG, UID/QD
     Route: 048
     Dates: start: 20120415, end: 20120514
  7. BROTIZOLAM [Concomitant]
     Indication: INSOMNIA
     Dosage: 0.25 MG, PRN
     Route: 048
     Dates: start: 20120426, end: 20120514
  8. OXYCONTIN [Concomitant]
     Indication: PRODUCT USED FOR UNKNOWN INDICATION
     Dosage: 10 MG, UID/QD
     Route: 048
     Dates: start: 20120507, end: 20120514
  9. ERLOTINIB HYDROCHLORIDE [Suspect]
     Indication: PANCREATIC CARCINOMA
     Dosage: 100 MG, UID/QD
     Route: 048
     Dates: start: 20120507, end: 20120511
  10. WARFARIN SODIUM [Suspect]
     Indication: PULMONARY THROMBOSIS
     Dosage: 2 MG, UID/QD
     Route: 048
     Dates: start: 20120430, end: 20120514
  11. LANTUS [Concomitant]
     Indication: DIABETES MELLITUS
     Dosage: 4 IU, UID/QD
     Route: 058
  12. NOVAMIN                            /00391002/ [Concomitant]
     Indication: PRODUCT USED FOR UNKNOWN INDICATION
     Dosage: 15 MG, UID/QD
     Route: 048
     Dates: start: 20120507, end: 20120514
  13. GEMCITABINE HYDROCHLORIDE [Suspect]
     Indication: PANCREATIC CARCINOMA
     Dosage: 1000 MG/M2, UID/QD
     Route: 041
     Dates: start: 20120507, end: 20120507
  14. NOVORAPID [Concomitant]
     Indication: DIABETES MELLITUS
     Dosage: 12 IU, UID/QD
     Route: 058
     Dates: start: 20120412, end: 20120514
  15. OLMESARTAN MEDOXOMIL [Concomitant]
     Indication: HYPERTENSION
     Dosage: 20 MG, UID/QD
     Route: 048
     Dates: start: 20120410, end: 20120514

REACTIONS (2)
  - BLOOD BILIRUBIN INCREASED [None]
  - CEREBRAL HAEMORRHAGE [None]
